FAERS Safety Report 5064898-9 (Version None)
Quarter: 2006Q3

REPORT INFORMATION
  Report Type: 
  Country: None (occurrence: None)
  Receive Date: 20060725
  Receipt Date: 20060712
  Transmission Date: 20061208
  Serious: Yes (Other)
  Sender: FDA-Public Use
  Company Number: US200606003434

PATIENT
  Age: 62 Year
  Sex: Female

DRUGS (4)
  1. HUMULIN R [Suspect]
     Dates: start: 19960101
  2. LANTUS [Concomitant]
  3. DIURETICS [Concomitant]
  4. ANTI-HYPERTENSIVE AGENT (ANTI-HYPERTENSIVE AGENT UNKNOWN FORMULATION) [Concomitant]

REACTIONS (4)
  - BLINDNESS UNILATERAL [None]
  - DIABETIC RETINOPATHY [None]
  - PHARMACEUTICAL PRODUCT COMPLAINT [None]
  - VISUAL ACUITY REDUCED [None]
